FAERS Safety Report 7120976-1 (Version None)
Quarter: 2010Q4

REPORT INFORMATION
  Report Type: 
  Country: None (occurrence: None)
  Receive Date: 20101124
  Receipt Date: 20100106
  Transmission Date: 20110411
  Serious: No
  Sender: FDA-Public Use
  Company Number: US-PFIZER INC-2010003500

PATIENT
  Sex: Female

DRUGS (5)
  1. TIKOSYN [Suspect]
     Dosage: 250 UG, 2X/DAY
     Dates: start: 20091101
  2. METOPROLOL TARTRATE [Concomitant]
     Dosage: UNK
  3. SYNTHROID [Concomitant]
     Dosage: UNK
  4. PREMARIN [Concomitant]
     Dosage: UNK
  5. SIMVASTATIN [Concomitant]
     Dosage: UNK

REACTIONS (2)
  - CHEST PAIN [None]
  - MALAISE [None]
